FAERS Safety Report 4595622-1 (Version None)
Quarter: 2005Q1

REPORT INFORMATION
  Report Type: 
  Country: None (occurrence: None)
  Receive Date: 20050224
  Receipt Date: 20041125
  Transmission Date: 20050727
  Serious: Yes (Life-Threatening, Hospitalization)
  Sender: FDA-Public Use
  Company Number: 6000551

PATIENT
  Age: 78 Year
  Sex: Male

DRUGS (3)
  1. BISOPROLOL FUMARATE [Suspect]
     Indication: HYPERTENSION
     Dosage: 10 MG (10 MG, 1 IN 1 D)
     Route: 048
     Dates: end: 20020202
  2. BETAMANN (EYE DROPS) (METIPRANOLOL HYDROCHLORIDE) [Suspect]
     Indication: GLAUCOMA
     Dosage: 2 DOSAGES
     Route: 031
     Dates: start: 19970101, end: 20020202
  3. BUDESONID STADA DOSIERAEROSOL [Concomitant]

REACTIONS (8)
  - ATRIAL FIBRILLATION [None]
  - ATRIOVENTRICULAR BLOCK SECOND DEGREE [None]
  - DISORIENTATION [None]
  - SINUS BRADYCARDIA [None]
  - SOMNOLENCE [None]
  - TACHYARRHYTHMIA [None]
  - THERAPEUTIC AGENT TOXICITY [None]
  - VISUAL DISTURBANCE [None]
